FAERS Safety Report 23193907 (Version 1)
Quarter: 2023Q4

REPORT INFORMATION
  Report Type: Spontaneous
  Country: JP (occurrence: JP)
  Receive Date: 20231116
  Receipt Date: 20231116
  Transmission Date: 20240110
  Serious: Yes (Death)
  Sender: FDA-Public Use
  Company Number: JP-SAKK-2023SA219009AA

PATIENT
  Sex: Male

DRUGS (2)
  1. JEVTANA [Suspect]
     Active Substance: CABAZITAXEL
     Indication: Product used for unknown indication
     Dosage: 20 MG/M2
     Route: 041
     Dates: start: 202305, end: 202305
  2. JEVTANA [Suspect]
     Active Substance: CABAZITAXEL
     Dosage: UNK
     Route: 041
     Dates: start: 202307

REACTIONS (2)
  - Dyspnoea [Fatal]
  - Diarrhoea [Recovered/Resolved]

NARRATIVE: CASE EVENT DATE: 20230101
